FAERS Safety Report 9442465 (Version 1)
Quarter: 2013Q3

REPORT INFORMATION
  Report Type: Spontaneous
  Country: US (occurrence: US)
  Receive Date: 20130806
  Receipt Date: 20130806
  Transmission Date: 20140515
  Serious: Yes (Hospitalization)
  Sender: FDA-Public Use
  Company Number: US-BAYER-2013-056379

PATIENT
  Age: 52 Year
  Sex: Male
  Weight: 93.88 kg

DRUGS (6)
  1. BAYER ADVANCED ASPIRIN EXTRA STRENGTH [Suspect]
     Indication: ANALGESIC THERAPY
     Dosage: 2 DF, PRN
     Route: 048
     Dates: start: 2013, end: 201304
  2. ATENOLOL [Concomitant]
  3. QUETIAPINE [Concomitant]
  4. DILAUDID [Concomitant]
  5. LORAZEPAM [Concomitant]
  6. MORPHINE SULFATE [Concomitant]

REACTIONS (3)
  - Diarrhoea [Recovered/Resolved]
  - Abdominal pain upper [Recovered/Resolved]
  - Nausea [Recovered/Resolved]
